FAERS Safety Report 25575927 (Version 1)
Quarter: 2025Q3

REPORT INFORMATION
  Report Type: Spontaneous
  Country: US (occurrence: US)
  Receive Date: 20250718
  Receipt Date: 20250718
  Transmission Date: 20251020
  Serious: Yes (Other)
  Sender: BRISTOL-MYERS SQUIBB COMPANY
  Company Number: US-BRISTOL-MYERS SQUIBB COMPANY-2025-098381

PATIENT
  Age: 83 Year
  Sex: Female

DRUGS (1)
  1. THALOMID [Suspect]
     Active Substance: THALIDOMIDE
     Indication: Lepromatous leprosy

REACTIONS (4)
  - Treatment noncompliance [Unknown]
  - Lepromatous leprosy [Unknown]
  - Off label use [Unknown]
  - Condition aggravated [Unknown]
